FAERS Safety Report 8168884-1 (Version None)
Quarter: 2012Q1

REPORT INFORMATION
  Report Type: 
  Country: None (occurrence: None)
  Receive Date: 20120227
  Receipt Date: 20120214
  Transmission Date: 20120608
  Serious: Yes (Death, Other)
  Sender: FDA-Public Use
  Company Number: GB-MYLANLABS-2012S1003567

PATIENT
  Age: 41 Year
  Sex: Male

DRUGS (5)
  1. MESALAMINE [Concomitant]
     Dosage: 2.4G
     Route: 065
  2. AZATHIOPRINE [Suspect]
     Indication: CROHN'S DISEASE
     Dosage: 2.5 MG/KG
     Route: 065
  3. CALCIUM [Concomitant]
     Route: 065
  4. PREDNISOLONE [Suspect]
     Indication: CROHN'S DISEASE
     Dosage: 15 MG DAILY FOR 15 YEARS
     Route: 065
  5. INFLIXIMAB [Concomitant]
     Indication: CROHN'S DISEASE
     Route: 065

REACTIONS (2)
  - METASTASES TO LUNG [None]
  - LEIOMYOSARCOMA [None]
